FAERS Safety Report 9777718 (Version 3)
Quarter: 2014Q1

REPORT INFORMATION
  Report Type: Spontaneous
  Country: AT (occurrence: AT)
  Receive Date: 20131223
  Receipt Date: 20140121
  Transmission Date: 20141002
  Serious: Yes (Life-Threatening)
  Sender: FDA-Public Use
  Company Number: AT-JNJFOC-20131212042

PATIENT
  Age: 74 Year
  Sex: Female

DRUGS (2)
  1. REGAINE 2% SOLUTION [Suspect]
     Route: 061
  2. REGAINE 2% SOLUTION [Suspect]
     Indication: PRODUCT USED FOR UNKNOWN INDICATION
     Route: 061

REACTIONS (1)
  - Arrhythmia [Recovered/Resolved]
